FAERS Safety Report 11295764 (Version 2)
Quarter: 2015Q3

REPORT INFORMATION
  Report Type: Spontaneous
  Country: US (occurrence: US)
  Receive Date: 20150722
  Receipt Date: 20150916
  Transmission Date: 20151125
  Serious: No
  Sender: FDA-Public Use
  Company Number: US-ELI_LILLY_AND_COMPANY-US200904001126

PATIENT
  Age: 72 Year
  Sex: Female

DRUGS (5)
  1. FORTEO [Suspect]
     Active Substance: TERIPARATIDE
     Indication: OSTEOPOROSIS
     Dosage: 20 UG, DAILY (1/D)
     Dates: start: 200803
  2. ADVIL [Concomitant]
     Active Substance: IBUPROFEN
  3. EVISTA [Suspect]
     Active Substance: RALOXIFENE HYDROCHLORIDE
     Indication: OSTEOPOROSIS
     Dosage: 60 MG, DAILY (1/D)
  4. MULTIVITAMIN [Concomitant]
     Active Substance: VITAMINS
  5. CALCIUM CARBONATE. [Concomitant]
     Active Substance: CALCIUM CARBONATE

REACTIONS (9)
  - Osteoporosis [Not Recovered/Not Resolved]
  - Fibula fracture [Not Recovered/Not Resolved]
  - Hypertension [Unknown]
  - Weight bearing difficulty [Unknown]
  - Pain in extremity [Not Recovered/Not Resolved]
  - Peripheral swelling [Recovered/Resolved]
  - Fall [Recovered/Resolved]
  - Contusion [Recovered/Resolved]
  - Pain in extremity [Not Recovered/Not Resolved]

NARRATIVE: CASE EVENT DATE: 200812
